FAERS Safety Report 7866491-9 (Version None)
Quarter: 2011Q4

REPORT INFORMATION
  Report Type: 
  Country: None (occurrence: None)
  Receive Date: 20111028
  Receipt Date: 20111024
  Transmission Date: 20120403
  Serious: Yes (Hospitalization, Other)
  Sender: FDA-Public Use
  Company Number: US-PFIZER INC-2011143858

PATIENT
  Sex: Female

DRUGS (5)
  1. DEMEROL [Concomitant]
     Indication: ENDOMETRIOSIS
     Dosage: UNK
     Dates: start: 20040101, end: 20100101
  2. CHANTIX [Suspect]
     Indication: SMOKING CESSATION THERAPY
     Dosage: 1 MG, UNK
     Dates: start: 20080304, end: 20080310
  3. IBUPROFEN [Concomitant]
     Indication: PAIN
     Dosage: UNK
     Dates: start: 20000101
  4. IBUPROFEN [Concomitant]
     Indication: ARTHRITIS
  5. AMOXICILLIN [Concomitant]
     Indication: ANTIBIOTIC THERAPY
     Dosage: UNK
     Dates: end: 20090101

REACTIONS (9)
  - MOOD SWINGS [None]
  - SUICIDAL BEHAVIOUR [None]
  - LOSS OF CONSCIOUSNESS [None]
  - AMNESIA [None]
  - INSOMNIA [None]
  - ANXIETY [None]
  - DEPRESSION [None]
  - AGGRESSION [None]
  - CONVULSION [None]
